FAERS Safety Report 8297062-0 (Version None)
Quarter: 2012Q2

REPORT INFORMATION
  Report Type: 
  Country: None (occurrence: None)
  Receive Date: 20120417
  Receipt Date: 20120417
  Transmission Date: 20120825
  Serious: Yes (Other)
  Sender: FDA-Public Use
  Company Number: None

PATIENT

DRUGS (1)
  1. VIIBRYD [Suspect]

REACTIONS (3)
  - ABNORMAL DREAMS [None]
  - PRODUCT QUALITY ISSUE [None]
  - MANIA [None]
